FAERS Safety Report 6759382-8 (Version None)
Quarter: 2010Q2

REPORT INFORMATION
  Report Type: 
  Country: None (occurrence: None)
  Receive Date: 20100602
  Receipt Date: 20100526
  Transmission Date: 20101027
  Serious: No
  Sender: FDA-Public Use
  Company Number: LIT-10-0031

PATIENT

DRUGS (1)
  1. CARBAMAZEPINE [Suspect]

REACTIONS (3)
  - AGGRESSION [None]
  - COMPLETED SUICIDE [None]
  - SUICIDE ATTEMPT [None]
